FAERS Safety Report 20787880 (Version 3)
Quarter: 2022Q4

REPORT INFORMATION
  Report Type: Report from Study
  Country: US (occurrence: US)
  Receive Date: 20220505
  Receipt Date: 20221019
  Transmission Date: 20230113
  Serious: Yes (Hospitalization, Other)
  Sender: FDA-Public Use
  Company Number: US-ABBVIE-22K-163-4381512-00

PATIENT
  Sex: Female

DRUGS (2)
  1. RINVOQ [Suspect]
     Active Substance: UPADACITINIB
     Indication: Rheumatoid arthritis
     Route: 048
  2. MODERNA COVID-19 VACCINE [Suspect]
     Active Substance: ELASOMERAN
     Indication: COVID-19 immunisation
     Dosage: 1 IN ONCE
     Route: 030

REACTIONS (15)
  - Colon cancer stage III [Unknown]
  - Knee operation [Unknown]
  - Abnormal faeces [Unknown]
  - Asthma [Unknown]
  - Myalgia [Unknown]
  - Productive cough [Unknown]
  - Ear pain [Unknown]
  - Hernia [Unknown]
  - Joint swelling [Unknown]
  - Blood cholesterol increased [Unknown]
  - Pain [Unknown]
  - Gastrooesophageal reflux disease [Recovering/Resolving]
  - Illness [Recovered/Resolved]
  - Peripheral swelling [Unknown]
  - Abdominal distension [Unknown]

NARRATIVE: CASE EVENT DATE: 20170101
